FAERS Safety Report 9091378 (Version 1)
Quarter: 2013Q1

REPORT INFORMATION
  Report Type: Report from Study
  Country: US (occurrence: US)
  Receive Date: 20130130
  Receipt Date: 20130130
  Transmission Date: 20140127
  Serious: No
  Sender: FDA-Public Use
  Company Number: US-ABBOTT-12P-163-0980467-00

PATIENT
  Age: 52 Year
  Sex: Female

DRUGS (4)
  1. HUMIRA [Suspect]
     Indication: CROHN^S DISEASE
     Route: 058
     Dates: start: 2009
  2. LEXAPRO [Concomitant]
     Indication: MIGRAINE
     Dosage: 20MG DAILY
  3. MULTIVITAMIN [Concomitant]
     Indication: PRODUCT USED FOR UNKNOWN INDICATION
  4. UNKNOWN MEDICATION (LIKE COLAZAL?) [Concomitant]
     Indication: CROHN^S DISEASE
     Dosage: 4 PILLS DAILY

REACTIONS (1)
  - Injection site pain [Recovered/Resolved]
